FAERS Safety Report 5061887-5 (Version None)
Quarter: 2006Q3

REPORT INFORMATION
  Report Type: 
  Country: None (occurrence: None)
  Receive Date: 20060726
  Receipt Date: 20060718
  Transmission Date: 20061208
  Serious: Yes (Hospitalization)
  Sender: FDA-Public Use
  Company Number: PHEH2006US09301

PATIENT
  Age: 87 Year
  Sex: Female
  Weight: 54.421 kg

DRUGS (9)
  1. DIOVAN [Suspect]
     Indication: HYPERTENSION
     Dosage: 160 MG, QD
     Route: 048
     Dates: start: 20040101
  2. DIOVAN [Suspect]
     Dosage: 320 MG, QD
     Route: 048
     Dates: end: 20060408
  3. HYDROCHLOROTHIAZIDE [Suspect]
  4. METOPROLOL BY MYLAN [Suspect]
  5. DILTIAZEM HCL [Suspect]
  6. VERAPAMIL [Suspect]
  7. LISINOPRIL [Suspect]
  8. TERAZOSIN HCL [Suspect]
  9. SYNTHROID [Concomitant]
     Indication: HYPOTHYROIDISM
     Dates: start: 19980101

REACTIONS (5)
  - BLOOD PRESSURE INCREASED [None]
  - DIZZINESS [None]
  - LOSS OF CONSCIOUSNESS [None]
  - SYNCOPE [None]
  - VERTIGO [None]
